FAERS Safety Report 25264957 (Version 7)
Quarter: 2025Q4

REPORT INFORMATION
  Report Type: Report from Study
  Country: ZA (occurrence: ZA)
  Receive Date: 20250502
  Receipt Date: 20251017
  Transmission Date: 20260117
  Serious: Yes (Hospitalization, Other)
  Sender: TEVA
  Company Number: ZA-TEVA-VS-3325785

PATIENT
  Age: 72 Year
  Sex: Female
  Weight: 73 kg

DRUGS (3)
  1. FINGOLIMOD HYDROCHLORIDE [Suspect]
     Active Substance: FINGOLIMOD HYDROCHLORIDE
     Indication: Multiple sclerosis
     Dosage: FREQUENCY: DAILY, FILENGIA
     Route: 058
     Dates: start: 20241212, end: 2025
  2. Hexaside (hydrochlorothiazide) [Concomitant]
     Indication: Hypertension
     Dosage: DAILY
     Route: 048
  3. Adco-Zildem [Concomitant]
     Indication: Angina pectoris
     Dosage: DAILY
     Route: 048

REACTIONS (21)
  - Hepatomegaly [Not Recovered/Not Resolved]
  - Heart failure with preserved ejection fraction [Not Recovered/Not Resolved]
  - Urinary incontinence [Recovering/Resolving]
  - Cough [Not Recovered/Not Resolved]
  - Skin discolouration [Unknown]
  - Pneumonia [Not Recovered/Not Resolved]
  - Urinary tract infection [Recovering/Resolving]
  - Chest pain [Not Recovered/Not Resolved]
  - Influenza [Recovered/Resolved]
  - Pain [Unknown]
  - Muscular weakness [Recovered/Resolved]
  - Dyspnoea [Recovered/Resolved]
  - Skin lesion [Unknown]
  - Sleep inertia [Unknown]
  - Back pain [Not Recovered/Not Resolved]
  - Fatigue [Not Recovered/Not Resolved]
  - Pain in extremity [Unknown]
  - Gait disturbance [Not Recovered/Not Resolved]
  - Pneumothorax [Not Recovered/Not Resolved]
  - Hypertension [Not Recovered/Not Resolved]
  - Dyspnoea [Not Recovered/Not Resolved]

NARRATIVE: CASE EVENT DATE: 20250101
